FAERS Safety Report 4598741-9 (Version None)
Quarter: 2005Q1

REPORT INFORMATION
  Report Type: 
  Country: None (occurrence: None)
  Receive Date: 20050304
  Receipt Date: 20030307
  Transmission Date: 20050727
  Serious: Yes (Death)
  Sender: FDA-Public Use
  Company Number: JP-GLAXOSMITHKLINE-B0373027A

PATIENT
  Age: 67 Year
  Sex: Male
  Weight: 51 kg

DRUGS (39)
  1. ALKERAN [Suspect]
     Indication: BONE MARROW CONDITIONING REGIMEN
     Route: 042
     Dates: start: 20020920, end: 20020920
  2. ETOPOSIDE [Concomitant]
     Indication: BONE MARROW CONDITIONING REGIMEN
     Dates: start: 20020917, end: 20020919
  3. LENOGRASTIM [Concomitant]
     Indication: HAEMATOPOIETIC STEM CELL MOBILISATION
     Dates: start: 20020922, end: 20021006
  4. MAGLAX [Concomitant]
     Route: 048
     Dates: start: 20021007
  5. PANTOSIN [Concomitant]
     Route: 048
     Dates: start: 20021007
  6. DIFLUCAN [Concomitant]
     Route: 048
     Dates: start: 20020920, end: 20021121
  7. ZOVIRAX [Concomitant]
     Route: 048
     Dates: start: 20020920, end: 20021023
  8. CIPROXAN [Concomitant]
     Route: 048
     Dates: start: 20020920, end: 20021023
  9. POLLAKISU [Concomitant]
     Route: 048
     Dates: start: 20020920, end: 20021203
  10. BAKTAR [Concomitant]
     Route: 048
     Dates: start: 20020920, end: 20021106
  11. SELBEX [Concomitant]
     Route: 048
     Dates: start: 20020920, end: 20021106
  12. KYTRIL [Concomitant]
     Dates: start: 20020920, end: 20020920
  13. DECADRON [Concomitant]
     Dates: start: 20020920, end: 20020920
  14. MEYLON [Concomitant]
     Dosage: 20ML EIGHT TIMES PER DAY
     Dates: start: 20020920, end: 20020920
  15. SOLU-CORTEF [Concomitant]
     Dates: start: 20020921, end: 20020921
  16. FUNGIZONE [Concomitant]
     Route: 048
     Dates: start: 20020920, end: 20020924
  17. PRIMPERAN TAB [Concomitant]
     Dates: start: 20020921, end: 20020921
  18. PRIMPERAN TAB [Concomitant]
     Dates: start: 20020930, end: 20020930
  19. ATARAX [Concomitant]
     Dates: start: 20020921, end: 20020921
  20. ATARAX [Concomitant]
     Dates: start: 20020930, end: 20020930
  21. HAPTOGLOBIN [Concomitant]
     Dates: start: 20020921, end: 20020921
  22. CHLOR-TRIMETON [Concomitant]
     Dates: start: 20020922, end: 20020922
  23. CHLOR-TRIMETON [Concomitant]
     Dates: start: 20020924, end: 20020924
  24. CHLOR-TRIMETON [Concomitant]
     Dates: start: 20021002, end: 20021002
  25. CHLOR-TRIMETON [Concomitant]
     Dates: start: 20021004, end: 20021004
  26. ZANTAC [Concomitant]
     Dates: start: 20020922, end: 20021001
  27. LOPEMIN [Concomitant]
     Route: 048
     Dates: start: 20020924, end: 20020924
  28. LOPEMIN [Concomitant]
     Route: 048
     Dates: start: 20020926, end: 20020926
  29. LOPEMIN [Concomitant]
     Route: 048
     Dates: start: 20020927, end: 20020927
  30. LOPEMIN [Concomitant]
     Route: 048
     Dates: start: 20021002, end: 20021002
  31. MODACIN [Concomitant]
     Route: 042
     Dates: start: 20020928, end: 20020930
  32. LOXONIN [Concomitant]
     Route: 048
     Dates: start: 20020929, end: 20020929
  33. LOXONIN [Concomitant]
     Route: 048
     Dates: start: 20020930, end: 20020930
  34. LOXONIN [Concomitant]
     Route: 048
     Dates: start: 20021001, end: 20021001
  35. LOXONIN [Concomitant]
     Route: 048
     Dates: start: 20021002, end: 20021002
  36. FIRSTCIN [Concomitant]
     Dates: start: 20020930, end: 20021007
  37. AMIKACIN SULFATE [Concomitant]
     Dates: start: 20020930, end: 20021007
  38. LAC B [Concomitant]
     Dosage: 1G PER DAY
     Route: 048
     Dates: start: 20021031
  39. BUSCOPAN [Concomitant]
     Dosage: 10MG PER DAY
     Route: 048
     Dates: start: 20021031

REACTIONS (1)
  - LEUKAEMIA [None]
